FAERS Safety Report 7783525-0 (Version None)
Quarter: 2011Q3

REPORT INFORMATION
  Report Type: 
  Country: None (occurrence: None)
  Receive Date: 20110901
  Receipt Date: 20110429
  Transmission Date: 20111222
  Serious: Yes (Disabling, Other)
  Sender: FDA-Public Use
  Company Number: 280002USA

PATIENT
  Sex: Male

DRUGS (2)
  1. METOCLOPRAMIDE [Suspect]
  2. METOCLOPRAMIDE [Suspect]

REACTIONS (7)
  - AKATHISIA [None]
  - EXTRAPYRAMIDAL DISORDER [None]
  - DYSTONIA [None]
  - MOVEMENT DISORDER [None]
  - TARDIVE DYSKINESIA [None]
  - MULTIPLE INJURIES [None]
  - NERVOUS SYSTEM DISORDER [None]
